FAERS Safety Report 6222454-0 (Version None)
Quarter: 2009Q2

REPORT INFORMATION
  Report Type: 
  Country: None (occurrence: None)
  Receive Date: 20090608
  Receipt Date: 20090525
  Transmission Date: 20091009
  Serious: Yes (Hospitalization)
  Sender: FDA-Public Use
  Company Number: IT-GENENTECH-283987

PATIENT
  Age: 25 Year
  Sex: Male

DRUGS (8)
  1. OMALIZUMAB [Suspect]
     Indication: DRUG USE FOR UNKNOWN INDICATION
     Dosage: 300 MG, Q2W
  2. FLUTICASONE [Concomitant]
     Indication: DRUG USE FOR UNKNOWN INDICATION
  3. SALMETEROL [Concomitant]
     Indication: DRUG USE FOR UNKNOWN INDICATION
  4. MONTELUKAST [Concomitant]
     Indication: DRUG USE FOR UNKNOWN INDICATION
  5. ALBUTEROL [Concomitant]
     Indication: DRUG USE FOR UNKNOWN INDICATION
  6. PREDNISONE [Concomitant]
     Indication: DRUG USE FOR UNKNOWN INDICATION
     Dosage: 25 MG, UNK
  7. PREDNISONE [Concomitant]
     Dosage: 12.5 MG, UNK
  8. PREDNISONE [Concomitant]
     Dosage: 6 MG, UNK

REACTIONS (12)
  - ACUTE RESPIRATORY FAILURE [None]
  - ALLERGIC GRANULOMATOUS ANGIITIS [None]
  - BRONCHOSPASM [None]
  - C-REACTIVE PROTEIN INCREASED [None]
  - CHEST PAIN [None]
  - COUGH [None]
  - DYSPNOEA [None]
  - EOSINOPHIL COUNT INCREASED [None]
  - HAEMOPTYSIS [None]
  - LUNG INFILTRATION [None]
  - WHEEZING [None]
  - WHITE BLOOD CELL COUNT INCREASED [None]
